FAERS Safety Report 13521689 (Version 1)
Quarter: 2017Q2

REPORT INFORMATION
  Report Type: Spontaneous
  Country: US (occurrence: US)
  Receive Date: 20170508
  Receipt Date: 20170508
  Transmission Date: 20170830
  Serious: Yes (Hospitalization, Other)
  Sender: FDA-Public Use
  Company Number: US-B.I. PHARMACEUTICALS,INC./RIDGEFIELD-2017-BI-024723

PATIENT
  Age: 59 Year
  Sex: Female

DRUGS (1)
  1. SPIOLTO [Suspect]
     Active Substance: OLODATEROL HYDROCHLORIDE\TIOTROPIUM BROMIDE MONOHYDRATE
     Indication: CHRONIC OBSTRUCTIVE PULMONARY DISEASE
     Dosage: 2 INHALATIONS QD;  FORM STRENGTH: 2.5 MCG; FORMULATION: INHALATION SPRAY? ADMINISTRATION CORRECT? NR
     Route: 055
     Dates: start: 2015

REACTIONS (3)
  - Hepatic cancer [Not Recovered/Not Resolved]
  - Lung neoplasm malignant [Not Recovered/Not Resolved]
  - Spinal cord neoplasm [Not Recovered/Not Resolved]

NARRATIVE: CASE EVENT DATE: 20170401
